FAERS Safety Report 7817281-4 (Version None)
Quarter: 2011Q4

REPORT INFORMATION
  Report Type: 
  Country: None (occurrence: None)
  Receive Date: 20111017
  Receipt Date: 20111011
  Transmission Date: 20120403
  Serious: Yes (Other)
  Sender: FDA-Public Use
  Company Number: US-PFIZER INC-2011242959

PATIENT
  Sex: Male
  Weight: 89.8 kg

DRUGS (1)
  1. LATANOPROST [Suspect]
     Indication: DIABETIC GLAUCOMA
     Dosage: 1 DROP IN EACH EYE DAILY IN THE EVENING
     Route: 047
     Dates: start: 20110901, end: 20111001

REACTIONS (3)
  - DRY EYE [None]
  - VISUAL IMPAIRMENT [None]
  - VISION BLURRED [None]
